FAERS Safety Report 6368590-X (Version None)
Quarter: 2009Q3

REPORT INFORMATION
  Report Type: 
  Country: None (occurrence: None)
  Receive Date: 20090917
  Receipt Date: 20090917
  Transmission Date: 20100115
  Serious: No
  Sender: FDA-Public Use
  Company Number: None

PATIENT
  Sex: Male
  Weight: 90.7194 kg

DRUGS (1)
  1. VIAGRA [Suspect]
     Indication: ERECTILE DYSFUNCTION
     Dosage: ONE TABLET ONE TIME PO
     Route: 048
     Dates: start: 20090910, end: 20090910

REACTIONS (3)
  - DEAFNESS NEUROSENSORY [None]
  - DIZZINESS [None]
  - TINNITUS [None]
